FAERS Safety Report 25649414 (Version 2)
Quarter: 2025Q3

REPORT INFORMATION
  Report Type: Spontaneous
  Country: EU (occurrence: EU)
  Receive Date: 20250806
  Receipt Date: 20250912
  Transmission Date: 20251020
  Serious: No
  Sender: AMGEN
  Company Number: EU-AMGEN-DEUSP2025145272

PATIENT

DRUGS (2)
  1. NEUPOGEN [Suspect]
     Active Substance: FILGRASTIM
     Indication: Product used for unknown indication
     Route: 065
  2. NEUPOGEN [Suspect]
     Active Substance: FILGRASTIM
     Route: 065

REACTIONS (2)
  - Device issue [Unknown]
  - Device issue [Unknown]

NARRATIVE: CASE EVENT DATE: 20250721
